FAERS Safety Report 20882897 (Version 1)
Quarter: 2022Q2

REPORT INFORMATION
  Report Type: Spontaneous
  Country: US (occurrence: US)
  Receive Date: 20220527
  Receipt Date: 20220527
  Transmission Date: 20220720
  Serious: No
  Sender: FDA-Public Use
  Company Number: US-GLAXOSMITHKLINE-US2022084072

PATIENT
  Age: 48 Year
  Sex: Female

DRUGS (3)
  1. TRELEGY ELLIPTA [Suspect]
     Active Substance: FLUTICASONE FUROATE\UMECLIDINIUM BROMIDE\VILANTEROL TRIFENATATE
     Indication: Obliterative bronchiolitis
     Dosage: 1 PUFF(S), QD
     Dates: start: 201801
  2. VENTOLIN HFA [Suspect]
     Active Substance: ALBUTEROL SULFATE
     Indication: Obliterative bronchiolitis
     Dosage: UNK
     Dates: start: 201801
  3. PREDNISONE [Suspect]
     Active Substance: PREDNISONE
     Indication: Obliterative bronchiolitis
     Dosage: UNK
     Dates: start: 201801, end: 202112

REACTIONS (1)
  - Drug ineffective [Recovered/Resolved]

NARRATIVE: CASE EVENT DATE: 20180101
